FAERS Safety Report 9698144 (Version 1)
Quarter: 2013Q4

REPORT INFORMATION
  Report Type: Spontaneous
  Country: US (occurrence: US)
  Receive Date: 20131120
  Receipt Date: 20131120
  Transmission Date: 20140711
  Serious: Yes (Other)
  Sender: FDA-Public Use
  Company Number: US-ASTRAZENECA-2013SE83816

PATIENT
  Sex: Female

DRUGS (13)
  1. SYMBICORT PMDI [Suspect]
     Indication: PRODUCT USED FOR UNKNOWN INDICATION
     Route: 055
     Dates: start: 201211, end: 201305
  2. SPIRIVA [Suspect]
     Indication: PRODUCT USED FOR UNKNOWN INDICATION
     Route: 055
     Dates: start: 201211
  3. FLOVENT HFA [Suspect]
     Indication: ASTHMA
     Dosage: TWICE PER DAY
     Route: 055
     Dates: start: 201211, end: 201309
  4. ADVAIR [Suspect]
     Indication: ASTHMA
     Dosage: 500/50 UG 1 PUFF TWICE DAILY
     Route: 055
     Dates: start: 2006, end: 201211
  5. ADVAIR [Suspect]
     Indication: CHRONIC OBSTRUCTIVE PULMONARY DISEASE
     Dosage: 500/50 UG 1 PUFF TWICE DAILY
     Route: 055
     Dates: start: 2006, end: 201211
  6. ADVAIR [Suspect]
     Indication: EMPHYSEMA
     Dosage: 500/50 UG 1 PUFF TWICE DAILY
     Route: 055
     Dates: start: 2006, end: 201211
  7. ADVAIR [Suspect]
     Indication: ASTHMA
     Dosage: 500/50 UG 1 PUFF TWICE DAILY
     Route: 055
     Dates: start: 201305
  8. ADVAIR [Suspect]
     Indication: CHRONIC OBSTRUCTIVE PULMONARY DISEASE
     Dosage: 500/50 UG 1 PUFF TWICE DAILY
     Route: 055
     Dates: start: 201305
  9. ADVAIR [Suspect]
     Indication: EMPHYSEMA
     Dosage: 500/50 UG 1 PUFF TWICE DAILY
     Route: 055
     Dates: start: 201305
  10. SINGULAIR [Concomitant]
  11. ALBUTEROL [Concomitant]
  12. XOLAIR [Concomitant]
  13. PREDNISONE [Concomitant]

REACTIONS (6)
  - Haemoptysis [Unknown]
  - Throat tightness [Unknown]
  - Oesophageal candidiasis [Unknown]
  - Oral candidiasis [Unknown]
  - Urticaria [Unknown]
  - Headache [Unknown]
